FAERS Safety Report 24417575 (Version 3)
Quarter: 2024Q4

REPORT INFORMATION
  Report Type: Report from Study
  Country: US (occurrence: US)
  Receive Date: 20241009
  Receipt Date: 20241226
  Transmission Date: 20250115
  Serious: Yes (Hospitalization, Other)
  Sender: TAKEDA
  Company Number: US-TAKEDA-2024TUS080308

PATIENT
  Age: 80 Year
  Sex: Female
  Weight: 53.515 kg

DRUGS (4)
  1. BRIGATINIB [Suspect]
     Active Substance: BRIGATINIB
     Indication: Lung neoplasm malignant
     Dosage: 90 MILLIGRAM, QD
     Dates: start: 20240725
  2. BRIGATINIB [Suspect]
     Active Substance: BRIGATINIB
     Dosage: 90 MILLIGRAM, QD
  3. LORAZEPAM [Concomitant]
     Active Substance: LORAZEPAM
     Indication: Product used for unknown indication
     Dosage: UNK
  4. NEXIUM [Concomitant]
     Active Substance: ESOMEPRAZOLE MAGNESIUM
     Indication: Product used for unknown indication
     Dosage: UNK

REACTIONS (14)
  - Concussion [Unknown]
  - Fall [Unknown]
  - Pneumonia [Unknown]
  - COVID-19 [Unknown]
  - Tremor [Unknown]
  - Bronchitis [Unknown]
  - Asthenia [Unknown]
  - Tongue discomfort [Unknown]
  - Anxiety [Unknown]
  - Product dose omission issue [Unknown]
  - Memory impairment [Unknown]
  - Musculoskeletal chest pain [Unknown]
  - Dyspepsia [Unknown]
  - Blood pressure increased [Unknown]

NARRATIVE: CASE EVENT DATE: 20240801
